FAERS Safety Report 19955827 (Version 11)
Quarter: 2024Q2

REPORT INFORMATION
  Report Type: Report from Study
  Country: US (occurrence: US)
  Receive Date: 20211014
  Receipt Date: 20240417
  Transmission Date: 20240716
  Serious: Yes (Other)
  Sender: FDA-Public Use
  Company Number: US-NOVARTISTESTPH-NVSC2021US234472

PATIENT
  Sex: Female

DRUGS (1)
  1. KESIMPTA [Suspect]
     Active Substance: OFATUMUMAB
     Indication: Multiple sclerosis
     Dosage: UNK
     Route: 058

REACTIONS (8)
  - Multiple sclerosis [Unknown]
  - Gait disturbance [Unknown]
  - Mobility decreased [Unknown]
  - Gait inability [Unknown]
  - Balance disorder [Unknown]
  - Neurological symptom [Unknown]
  - Stress [Unknown]
  - Fall [Unknown]
